FAERS Safety Report 9348263 (Version 1)
Quarter: 2013Q2

REPORT INFORMATION
  Report Type: Spontaneous
  Country: FR (occurrence: FR)
  Receive Date: 20130614
  Receipt Date: 20130614
  Transmission Date: 20140414
  Serious: Yes (Hospitalization)
  Sender: FDA-Public Use
  Company Number: FR-PFIZER INC-2013178377

PATIENT
  Age: 92 Year
  Sex: Female

DRUGS (8)
  1. CORDARONE [Suspect]
     Indication: ARRHYTHMIA
     Dosage: 200 MG PER DAY, 5/7 DAYS
     Route: 048
     Dates: start: 201210, end: 20121206
  2. ZOPICLONE [Suspect]
     Indication: ANXIETY
     Dosage: UNK
     Route: 048
     Dates: start: 201211, end: 20121206
  3. AMOXI-CLAVULANICO [Suspect]
     Indication: LUNG INFECTION
     Dosage: UNK
     Route: 048
     Dates: start: 201210, end: 201211
  4. L-THYROXINE [Concomitant]
     Indication: HYPOTHYROIDISM
     Dosage: UNK
     Dates: start: 201211
  5. LASILIX [Concomitant]
     Dosage: UNK
     Dates: start: 201211
  6. OFLOCET [Concomitant]
     Indication: LUNG INFECTION
     Dosage: UNK
     Dates: start: 201210
  7. XARELTO [Concomitant]
     Indication: ARRHYTHMIA
     Dosage: UNK
     Dates: start: 201211
  8. ALPRAZOLAM [Concomitant]
     Dosage: UNK
     Dates: start: 201211

REACTIONS (3)
  - Cholestasis [Recovering/Resolving]
  - Jaundice [Recovered/Resolved]
  - Pruritus [Recovered/Resolved]
